FAERS Safety Report 13998351 (Version 3)
Quarter: 2017Q4

REPORT INFORMATION
  Report Type: Report from Study
  Country: US (occurrence: US)
  Receive Date: 20170921
  Receipt Date: 20171109
  Transmission Date: 20180321
  Serious: Yes (Other)
  Sender: FDA-Public Use
  Company Number: US-JAZZ-2017-US-012145

PATIENT
  Age: 44 Year
  Sex: Female

DRUGS (7)
  1. METHYLPHENIDATE. [Concomitant]
     Active Substance: METHYLPHENIDATE
  2. NUVIGIL [Concomitant]
     Active Substance: ARMODAFINIL
  3. VENLAFAXINE HCL [Concomitant]
     Active Substance: VENLAFAXINE HYDROCHLORIDE
  4. XYREM [Suspect]
     Active Substance: SODIUM OXYBATE
     Indication: CATAPLEXY
     Dosage: DOSE ADJUSTMENT
     Route: 048
     Dates: start: 201605, end: 201605
  5. XYREM [Suspect]
     Active Substance: SODIUM OXYBATE
     Dosage: 4.5 G, BID
     Route: 048
     Dates: start: 201605
  6. INDOMETHACIN                       /00003801/ [Concomitant]
     Active Substance: INDOMETHACIN
  7. XYREM [Suspect]
     Active Substance: SODIUM OXYBATE
     Indication: NARCOLEPSY
     Dosage: 2.25 G, BID
     Route: 048
     Dates: start: 201605, end: 201605

REACTIONS (3)
  - Surgery [Recovered/Resolved]
  - Hypertension [Unknown]
  - Anxiety [Unknown]

NARRATIVE: CASE EVENT DATE: 20170914
